FAERS Safety Report 8963860 (Version 2)
Quarter: 2013Q1

REPORT INFORMATION
  Report Type: Spontaneous
  Country: US (occurrence: US)
  Receive Date: 20121214
  Receipt Date: 20130313
  Transmission Date: 20140127
  Serious: Yes (Congenital Anomaly, Other)
  Sender: FDA-Public Use
  Company Number: US-PFIZER INC-2012313290

PATIENT
  Sex: Female

DRUGS (1)
  1. ZOLOFT [Suspect]
     Indication: DEPRESSION
     Dosage: UNK
     Route: 064
     Dates: start: 2002, end: 2007

REACTIONS (7)
  - Maternal exposure timing unspecified [Unknown]
  - Anal atresia [Unknown]
  - Congenital large intestinal atresia [Unknown]
  - Rectal atresia [Unknown]
  - Congenital intestinal malformation [Unknown]
  - Atrial septal defect [Unknown]
  - Premature baby [Unknown]
